FAERS Safety Report 9375349 (Version 2)
Quarter: 2014Q2

REPORT INFORMATION
  Report Type: Spontaneous
  Country: US (occurrence: US)
  Receive Date: 20130628
  Receipt Date: 20140418
  Transmission Date: 20141212
  Serious: No
  Sender: FDA-Public Use
  Company Number: US-B.I. PHARMACEUTICALS,INC./RIDGEFIELD-2013-BI-18027BP

PATIENT
  Age: 75 Year
  Sex: Female
  Weight: 41 kg

DRUGS (8)
  1. COMBIVENT [Suspect]
     Indication: CHRONIC OBSTRUCTIVE PULMONARY DISEASE
     Dosage: STRENGTH: 20 MCG / 100 MCG; DAILY DOSE: 80MCG/400MCG
     Route: 055
     Dates: start: 20130603
  2. K-CITRATE [Concomitant]
     Indication: NEPHROLITHIASIS
     Dosage: 1080 MEQ
     Route: 048
  3. SIMVASTATIN [Concomitant]
     Indication: BLOOD CHOLESTEROL INCREASED
     Dosage: 40 MG
     Route: 048
  4. FOSAMAX [Concomitant]
     Indication: OSTEOPOROSIS
     Dosage: 70 MG
     Route: 048
  5. ZANTAC [Concomitant]
     Indication: HIATUS HERNIA
     Dosage: 150 MG
     Route: 048
  6. LEVOTHYROXINE [Concomitant]
     Indication: HYPOTHYROIDISM
     Dosage: 0.05 MG
     Route: 048
  7. PREDNISONE [Concomitant]
     Indication: COLITIS
     Dosage: 25 MG
     Route: 048
     Dates: start: 20130616
  8. ADVAIR DISKUS [Concomitant]
     Indication: CHRONIC OBSTRUCTIVE PULMONARY DISEASE
     Dosage: STRENGTH: 250/50; DAILY DOSE: 500/100MG
     Route: 055

REACTIONS (3)
  - Dyspnoea [Recovered/Resolved]
  - Overdose [Recovered/Resolved]
  - Product quality issue [Recovered/Resolved]
